FAERS Safety Report 5478724-7 (Version None)
Quarter: 2007Q4

REPORT INFORMATION
  Report Type: 
  Country: None (occurrence: None)
  Receive Date: 20071005
  Receipt Date: 20071004
  Transmission Date: 20080405
  Serious: Yes (Death)
  Sender: FDA-Public Use
  Company Number: DE-BOEHRINGER INGELHEIM PHARMACEUTICALS, INC.-2007-DE-05814DE

PATIENT
  Sex: Female
  Weight: 70 kg

DRUGS (9)
  1. SIFROL [Suspect]
     Indication: RESTLESS LEGS SYNDROME
     Route: 048
     Dates: start: 20070519
  2. SIFROL [Suspect]
     Route: 048
     Dates: start: 20070602, end: 20070629
  3. ACTONEL [Concomitant]
     Dosage: 1/WEEK
     Dates: end: 20070604
  4. ACTRAPID [Concomitant]
     Dosage: AS REQUIRED
     Dates: end: 20070604
  5. BERODUAL [Concomitant]
     Dosage: AS REQUIRED
     Dates: end: 20070604
  6. DIGITOXIN [Concomitant]
     Route: 048
     Dates: end: 20070604
  7. METYPRED [Concomitant]
     Dates: end: 20070604
  8. FUROSEMIDE [Concomitant]
     Dates: end: 20070604
  9. FALICARD RR [Concomitant]
     Dates: end: 20070604

REACTIONS (1)
  - RIGHT VENTRICULAR FAILURE [None]
